FAERS Safety Report 15275832 (Version 1)
Quarter: 2018Q3

REPORT INFORMATION
  Report Type: Spontaneous
  Country: US (occurrence: US)
  Receive Date: 20180727
  Receipt Date: 20180727
  Transmission Date: 20181010
  Serious: Yes (Death, Hospitalization)
  Sender: FDA-Public Use
  Company Number: None

PATIENT
  Age: 50 Year
  Sex: Male

DRUGS (4)
  1. GABAPENTIN. [Concomitant]
     Active Substance: GABAPENTIN
  2. PREGABALIN. [Concomitant]
     Active Substance: PREGABALIN
  3. VANCOMYCIN [Concomitant]
     Active Substance: VANCOMYCIN
  4. LINEZOLID. [Suspect]
     Active Substance: LINEZOLID
     Indication: ENDOCARDITIS
     Route: 042
     Dates: start: 20180126, end: 20180202

REACTIONS (2)
  - Drug eruption [None]
  - Toxic epidermal necrolysis [None]

NARRATIVE: CASE EVENT DATE: 20180202
